FAERS Safety Report 5495536-9 (Version None)
Quarter: 2007Q4

REPORT INFORMATION
  Report Type: 
  Country: None (occurrence: None)
  Receive Date: 20071015
  Receipt Date: 20070515
  Transmission Date: 20080405
  Serious: Yes (Other)
  Sender: FDA-Public Use
  Company Number: S07-USA-02092-01

PATIENT
  Age: 60 Year
  Sex: Female

DRUGS (3)
  1. LEXAPRO [Suspect]
     Indication: DEPRESSION
     Dosage: 10 MG QD PO
     Route: 048
     Dates: start: 20070403, end: 20070505
  2. LEXAPRO [Suspect]
     Indication: DEPRESSION
     Dosage: 10 MG QOD PO
     Route: 048
     Dates: start: 20070606, end: 20070612
  3. PREVACID [Concomitant]

REACTIONS (11)
  - BACK PAIN [None]
  - CONSTIPATION [None]
  - CONTUSION [None]
  - DIZZINESS [None]
  - FALL [None]
  - FLIGHT OF IDEAS [None]
  - HEADACHE [None]
  - NAUSEA [None]
  - TINNITUS [None]
  - VASCULAR HEADACHE [None]
  - WRIST FRACTURE [None]
